FAERS Safety Report 9919977 (Version 2)
Quarter: 2014Q2

REPORT INFORMATION
  Report Type: Spontaneous
  Country: MX (occurrence: MX)
  Receive Date: 20140224
  Receipt Date: 20140609
  Transmission Date: 20141212
  Serious: Yes (Death, Other)
  Sender: FDA-Public Use
  Company Number: PHHY2014MX021697

PATIENT
  Age: 92 Year
  Sex: Female

DRUGS (5)
  1. STALEVO [Suspect]
     Indication: PARKINSON^S DISEASE
     Dosage: ONE TABLET DAILY (200/50/12.5MG)
     Route: 048
     Dates: start: 201106, end: 201301
  2. STALEVO [Interacting]
     Dosage: THREE TABLETS DAILY (200/100/25MG)
     Route: 048
     Dates: start: 201301
  3. ANGIOTROFIN [Interacting]
     Indication: CARDIOVASCULAR DISORDER
     Dosage: 1 UKN, DAILY
  4. ANGIOTROFIN [Interacting]
     Indication: CARDIAC MURMUR
  5. NUBRENZA [Concomitant]
     Indication: PARKINSON^S DISEASE
     Dosage: UNK UKN, UNK
     Dates: start: 201305

REACTIONS (12)
  - Pneumonia [Fatal]
  - Asphyxia [Fatal]
  - Productive cough [Not Recovered/Not Resolved]
  - Cardiac failure [Not Recovered/Not Resolved]
  - Catheter site pain [Not Recovered/Not Resolved]
  - Catheter site discharge [Not Recovered/Not Resolved]
  - Lung infection [Unknown]
  - Device related infection [Unknown]
  - Concomitant disease aggravated [Not Recovered/Not Resolved]
  - Dysphagia [Not Recovered/Not Resolved]
  - Parkinson^s disease [Not Recovered/Not Resolved]
  - Disease progression [Not Recovered/Not Resolved]
